FAERS Safety Report 5670495-4 (Version None)
Quarter: 2008Q1

REPORT INFORMATION
  Report Type: 
  Country: None (occurrence: None)
  Receive Date: 20080318
  Receipt Date: 20080310
  Transmission Date: 20080703
  Serious: Yes (Hospitalization)
  Sender: FDA-Public Use
  Company Number: JP-NOVOPROD-272816

PATIENT
  Sex: Male
  Weight: 50 kg

DRUGS (6)
  1. NOVORAPID 30 MIX CHU [Suspect]
     Indication: DIABETES MELLITUS
     Dosage: 10 IU, QD
     Route: 058
     Dates: start: 20061214, end: 20071211
  2. NOVORAPID CHU PENFILL [Concomitant]
  3. MELBIN                             /00082702/ [Concomitant]
     Route: 048
     Dates: start: 20061214, end: 20071213
  4. MELBIN                             /00082702/ [Concomitant]
     Dates: start: 20071210, end: 20071213
  5. BASEN [Concomitant]
     Dosage: UNK, UNK
     Route: 048
     Dates: start: 20061214, end: 20071211
  6. AMARYL [Concomitant]
     Dosage: 1 MG, UNK
     Route: 048
     Dates: start: 20080101

REACTIONS (3)
  - ANTI-INSULIN ANTIBODY POSITIVE [None]
  - HEPATIC FUNCTION ABNORMAL [None]
  - HYPOGLYCAEMIA [None]
